FAERS Safety Report 12220229 (Version 1)
Quarter: 2016Q1

REPORT INFORMATION
  Report Type: Spontaneous
  Country: US (occurrence: None)
  Receive Date: 20160329
  Receipt Date: 20160329
  Transmission Date: 20160526
  Serious: No
  Sender: FDA-Public Use
  Company Number: None

PATIENT
  Age: 23 Year
  Sex: Female

DRUGS (5)
  1. BUSPIRONE [Concomitant]
     Active Substance: BUSPIRONE HYDROCHLORIDE
  2. DOVONEX [Concomitant]
     Active Substance: CALCIPOTRIENE
  3. BETAMETHSAONE [Concomitant]
  4. ENBREL [Suspect]
     Active Substance: ETANERCEPT
     Indication: PSORIASIS
     Route: 058
     Dates: start: 20151224
  5. TYLENOL [Concomitant]
     Active Substance: ACETAMINOPHEN

REACTIONS (9)
  - Flushing [None]
  - Pruritus [None]
  - Arthralgia [None]
  - Temperature intolerance [None]
  - Injection site erythema [None]
  - Injection site warmth [None]
  - Stress [None]
  - Injection site pain [None]
  - Drug dose omission [None]

NARRATIVE: CASE EVENT DATE: 201512
